FAERS Safety Report 15488561 (Version 2)
Quarter: 2018Q4

REPORT INFORMATION
  Report Type: Spontaneous
  Country: IN (occurrence: IN)
  Receive Date: 20181011
  Receipt Date: 20181018
  Transmission Date: 20190205
  Serious: Yes (Hospitalization, Other)
  Sender: FDA-Public Use
  Company Number: IN-PFIZER INC-2018405193

PATIENT
  Age: 20 Year
  Sex: Male

DRUGS (2)
  1. SULPHASALAZINE [Concomitant]
     Active Substance: SULFASALAZINE
     Indication: ANKYLOSING SPONDYLITIS
     Dosage: UNK
  2. BENZATHINE BENZYLPENICILLIN [Suspect]
     Active Substance: PENICILLIN G BENZATHINE
     Dosage: 1.2 MILLION IU, EVERY 3 WEEKS
     Route: 030
     Dates: start: 2006

REACTIONS (2)
  - Embolia cutis medicamentosa [Recovering/Resolving]
  - Myelitis transverse [Not Recovered/Not Resolved]
